FAERS Safety Report 5162891-9 (Version None)
Quarter: 2006Q4

REPORT INFORMATION
  Report Type: 
  Country: None (occurrence: None)
  Receive Date: 20061121
  Receipt Date: 20061108
  Transmission Date: 20070319
  Serious: Yes (Other)
  Sender: FDA-Public Use
  Company Number: 2006US-04437

PATIENT
  Age: 50 Year

DRUGS (1)
  1. ISOTRETINOIN [Suspect]

REACTIONS (1)
  - NEOPLASM PROGRESSION [None]
